FAERS Safety Report 8598590-0 (Version None)
Quarter: 2012Q3

REPORT INFORMATION
  Report Type: 
  Country: None (occurrence: None)
  Receive Date: 20120803
  Receipt Date: 20120719
  Transmission Date: 20120928
  Serious: Yes (Other)
  Sender: FDA-Public Use
  Company Number: E2B-_00000309

PATIENT
  Age: 70 Year
  Sex: Female
  Weight: 59.8748 kg

DRUGS (7)
  1. AMLODIPINE BESYLATE [Suspect]
     Indication: HYPERTENSION
     Dosage: 10 MG (10 MG,1 IN 1 D),PER ORAL
     Route: 048
  2. LISINOPRIL [Suspect]
     Indication: HYPERTENSION
     Dosage: 20 MG (20 MG,1 IN 1 D),PER ORAL
     Route: 048
  3. LEVOTHYROXINE SODIUM [Concomitant]
  4. LISINOPRIL AND HYDROCHLOROTHIAZIDE [Suspect]
     Indication: HYPERTENSION
     Dosage: 20 MG/25 MG (1 IN 1 D),PER ORAL
     Route: 048
  5. METOPROLOL SUCCINATE EXTENDED RELEASE [Concomitant]
  6. PAROXETINE [Concomitant]
  7. METFORMIN HCL [Concomitant]

REACTIONS (4)
  - COELIAC DISEASE [None]
  - DERMATITIS HERPETIFORMIS [None]
  - NAUSEA [None]
  - VOMITING [None]
